FAERS Safety Report 4346144-4 (Version None)
Quarter: 2004Q1

REPORT INFORMATION
  Report Type: 
  Country: None (occurrence: None)
  Receive Date: 20040325
  Receipt Date: 20040106
  Transmission Date: 20041129
  Serious: No
  Sender: FDA-Public Use
  Company Number: USA040155911

PATIENT
  Age: 45 Year
  Sex: Female

DRUGS (11)
  1. FORTEO [Suspect]
     Indication: OSTEOPOROSIS
     Dates: start: 20031224
  2. VENTOLIN [Concomitant]
  3. PLAQUENIL [Concomitant]
  4. PREVACID [Concomitant]
  5. DYAZIDE [Concomitant]
  6. ADVAIR DISKUS 100/50 [Concomitant]
  7. PHRENILIN [Concomitant]
  8. TYLENOL W/ CODEINE NO. 3 [Concomitant]
  9. MAGNESIUM [Concomitant]
  10. CALCIUM [Concomitant]
  11. MULTIVITAMIN [Concomitant]

REACTIONS (2)
  - DIZZINESS [None]
  - PALPITATIONS [None]
